FAERS Safety Report 6448222-2 (Version None)
Quarter: 2009Q4

REPORT INFORMATION
  Report Type: 
  Country: None (occurrence: None)
  Receive Date: 20091120
  Receipt Date: 20091112
  Transmission Date: 20100525
  Serious: Yes (Life-Threatening, Other)
  Sender: FDA-Public Use
  Company Number: GB-TYCO HEALTHCARE/MALLINCKRODT-T200901779

PATIENT
  Age: 74 Year
  Sex: Male

DRUGS (11)
  1. OPTIRAY 350 [Suspect]
     Indication: ANGIOGRAM
     Dosage: 110 ML, SINGLE
     Route: 013
     Dates: start: 20090917, end: 20090917
  2. GTM SPRAY [Concomitant]
  3. AMLODIPINE [Concomitant]
     Indication: ANGINA PECTORIS
     Dosage: 5 MG, UNK
     Route: 048
  4. ATENOLOL [Concomitant]
     Dosage: 50 MG, QD
  5. CLOPIDOGREL [Concomitant]
     Indication: ANGINA PECTORIS
     Dosage: 75 MG, UNK
     Route: 048
  6. DOMPERIDONE [Concomitant]
     Dosage: 10 MG, QD
  7. EZETIMIBE [Concomitant]
     Indication: HYPERLIPIDAEMIA
     Dosage: 10 MG, QD
     Route: 048
  8. ISOSORBIDE MONONITRATE [Concomitant]
     Dosage: 30 MG, BID
  9. NICORANDIL [Concomitant]
     Dosage: 10 MG, BID
  10. PRAVASTATIN [Concomitant]
     Dosage: 40 MG, QD
  11. RANITIDINE [Concomitant]
     Dosage: 300 MG, BID
     Route: 048

REACTIONS (7)
  - BRADYCARDIA [None]
  - CHEST DISCOMFORT [None]
  - COUGH [None]
  - DYSPNOEA [None]
  - HYPOTENSION [None]
  - MALAISE [None]
  - OXYGEN SATURATION DECREASED [None]
